FAERS Safety Report 6328180-1 (Version None)
Quarter: 2009Q3

REPORT INFORMATION
  Report Type: 
  Country: None (occurrence: None)
  Receive Date: 20090825
  Receipt Date: 20081001
  Transmission Date: 20100115
  Serious: No
  Sender: FDA-Public Use
  Company Number: US-ABBOTT-08P-163-0479190-00

PATIENT
  Sex: Female

DRUGS (3)
  1. SYNTHROID [Suspect]
     Indication: AUTOIMMUNE THYROIDITIS
     Route: 048
     Dates: start: 19910101, end: 20080924
  2. SYNTHROID [Suspect]
     Route: 048
     Dates: start: 20080926, end: 20080927
  3. SYNTHROID [Suspect]
     Route: 048
     Dates: start: 20080928, end: 20081001

REACTIONS (4)
  - ANXIETY [None]
  - ASTHENIA [None]
  - HYPOGLYCAEMIA [None]
  - NIGHT SWEATS [None]
